FAERS Safety Report 6772182-8 (Version None)
Quarter: 2010Q2

REPORT INFORMATION
  Report Type: 
  Country: None (occurrence: None)
  Receive Date: 20100616
  Receipt Date: 20100609
  Transmission Date: 20101027
  Serious: Yes (Other)
  Sender: FDA-Public Use
  Company Number: PHHO2010TR08686

PATIENT
  Sex: Female
  Weight: 77 kg

DRUGS (1)
  1. CGP 57148B T35717+ [Suspect]
     Indication: GASTROINTESTINAL STROMAL TUMOUR
     Dosage: 400MG DAILY
     Route: 048
     Dates: start: 20090722

REACTIONS (4)
  - ABDOMINAL PAIN [None]
  - ABORTION INDUCED [None]
  - DRUG EXPOSURE DURING PREGNANCY [None]
  - INTRA-UTERINE DEATH [None]
